FAERS Safety Report 6523812-7 (Version None)
Quarter: 2009Q4

REPORT INFORMATION
  Report Type: 
  Country: None (occurrence: None)
  Receive Date: 20091231
  Receipt Date: 20091222
  Transmission Date: 20100525
  Serious: Yes (Other)
  Sender: FDA-Public Use
  Company Number: TW-JNJFOC-20091206767

PATIENT
  Age: 23 Year
  Sex: Male

DRUGS (4)
  1. RISPERIDONE [Suspect]
     Indication: MANIA
     Route: 065
  2. RISPERIDONE [Suspect]
     Route: 065
  3. CLONAZEPAM [Concomitant]
     Route: 065
  4. VALPROATE SODIUM [Concomitant]
     Route: 065

REACTIONS (1)
  - TREMOR [None]
